FAERS Safety Report 9146255 (Version 2)
Quarter: 2013Q2

REPORT INFORMATION
  Report Type: Spontaneous
  Country: US (occurrence: US)
  Receive Date: 20130307
  Receipt Date: 20130516
  Transmission Date: 20140414
  Serious: Yes (Hospitalization)
  Sender: FDA-Public Use
  Company Number: US-PFIZER INC-2013077274

PATIENT
  Age: 64 Year
  Sex: Female
  Weight: 83.9 kg

DRUGS (4)
  1. LIPITOR [Suspect]
     Dosage: UNK
  2. XALATAN [Suspect]
     Indication: GLAUCOMA
     Dosage: 1 GTT, ONCE DAILY (IN EACH EYE AT BEDTIME)
     Route: 047
  3. TYLENOL [Suspect]
     Dosage: UNK
  4. VITAMIN D3 [Concomitant]
     Dosage: UNK

REACTIONS (2)
  - Diverticulitis [Unknown]
  - Drug hypersensitivity [Unknown]
